FAERS Safety Report 21567441 (Version 2)
Quarter: 2023Q1

REPORT INFORMATION
  Report Type: Report from Study
  Country: US (occurrence: US)
  Receive Date: 20221108
  Receipt Date: 20230104
  Transmission Date: 20230418
  Serious: No
  Sender: FDA-Public Use
  Company Number: US-ABBVIE-4158028

PATIENT
  Sex: Male

DRUGS (4)
  1. RINVOQ [Suspect]
     Active Substance: UPADACITINIB
     Indication: Colitis ulcerative
     Dosage: LAST ADMIN DATE-2022
     Route: 048
     Dates: start: 20220726
  2. RINVOQ [Suspect]
     Active Substance: UPADACITINIB
     Indication: Colitis ulcerative
     Dosage: FIRST ADMIN DATE- 2022
     Route: 048
  3. TALTZ [Concomitant]
     Active Substance: IXEKIZUMAB
     Indication: Product used for unknown indication
     Dosage: (1=1)
     Route: 065
  4. ZYRTEC ALLGY 10 Milligram [Concomitant]
     Indication: Product used for unknown indication
     Route: 048

REACTIONS (3)
  - Sinus congestion [Recovering/Resolving]
  - Musculoskeletal stiffness [Recovered/Resolved]
  - Sinus disorder [Recovered/Resolved]
